FAERS Safety Report 24071899 (Version 1)
Quarter: 2024Q3

REPORT INFORMATION
  Report Type: Report from Study
  Country: GB (occurrence: GB)
  Receive Date: 20240710
  Receipt Date: 20240710
  Transmission Date: 20241017
  Serious: No
  Sender: ROCHE
  Company Number: GB-ROCHE-3184271

PATIENT
  Sex: Male

DRUGS (1)
  1. EVRYSDI [Suspect]
     Active Substance: RISDIPLAM
     Indication: Product used for unknown indication
     Dosage: 4.7 ML DAILY
     Route: 065
     Dates: start: 202206

REACTIONS (5)
  - Glossodynia [Unknown]
  - Rash [Unknown]
  - Constipation [Unknown]
  - Malaise [Unknown]
  - Illness [Unknown]
